FAERS Safety Report 22979749 (Version 4)
Quarter: 2024Q2

REPORT INFORMATION
  Report Type: Spontaneous
  Country: US (occurrence: US)
  Receive Date: 20230925
  Receipt Date: 20240402
  Transmission Date: 20240716
  Serious: Yes (Other)
  Sender: FDA-Public Use
  Company Number: US-PFIZER INC-PV202300116819

PATIENT
  Age: 61 Year
  Sex: Male

DRUGS (2)
  1. TALZENNA [Suspect]
     Active Substance: TALAZOPARIB TOSYLATE
     Indication: Prostate cancer
     Dosage: 0.5 MG, 1X/DAY (TAKING 2 A DAY)
  2. TALZENNA [Suspect]
     Active Substance: TALAZOPARIB TOSYLATE
     Dosage: 0.25 MG (1 CAPSULE), 1X/DAY
     Dates: start: 20230622

REACTIONS (8)
  - Anaemia [Unknown]
  - Haemoglobin decreased [Unknown]
  - Red blood cell count decreased [Unknown]
  - Full blood count decreased [Unknown]
  - Constipation [Unknown]
  - Nausea [Unknown]
  - Decreased appetite [Unknown]
  - Dyspepsia [Unknown]
